FAERS Safety Report 6803605-3 (Version None)
Quarter: 2010Q2

REPORT INFORMATION
  Report Type: 
  Country: None (occurrence: None)
  Receive Date: 20100628
  Receipt Date: 20100616
  Transmission Date: 20101027
  Serious: Yes (Other)
  Sender: FDA-Public Use
  Company Number: US-PFIZER INC-2010055313

PATIENT
  Sex: Female

DRUGS (7)
  1. LYRICA [Suspect]
     Dosage: UNK
  2. GABAPENTIN [Suspect]
     Dates: start: 20100101
  3. BUSPAR [Suspect]
  4. ACETYLSALICYLIC ACID [Concomitant]
  5. THYROID [Concomitant]
  6. HYDROCHLOROTHIAZIDE [Concomitant]
  7. ALLEGRA [Concomitant]

REACTIONS (8)
  - CARPAL TUNNEL SYNDROME [None]
  - CERVICAL SPINAL STENOSIS [None]
  - DRUG INEFFECTIVE [None]
  - HYPOAESTHESIA [None]
  - MUSCLE RIGIDITY [None]
  - OEDEMA PERIPHERAL [None]
  - PAIN [None]
  - PERIPHERAL COLDNESS [None]
